FAERS Safety Report 12491561 (Version 1)
Quarter: 2016Q2

REPORT INFORMATION
  Report Type: Spontaneous
  Country: US (occurrence: US)
  Receive Date: 20160623
  Receipt Date: 20160623
  Transmission Date: 20160815
  Serious: No
  Sender: FDA-Public Use
  Company Number: US-PFIZER INC-2016287036

PATIENT
  Age: 31 Year
  Sex: Female
  Weight: 92 kg

DRUGS (1)
  1. LYRICA [Suspect]
     Active Substance: PREGABALIN
     Indication: SEIZURE
     Dosage: 150 MG, 2X/DAY
     Route: 048

REACTIONS (5)
  - Hunger [Unknown]
  - Mood altered [Unknown]
  - Dizziness [Unknown]
  - Hypoglycaemia [Unknown]
  - Affective disorder [Unknown]
